FAERS Safety Report 8810065 (Version 2)
Quarter: 2013Q1

REPORT INFORMATION
  Report Type: Spontaneous
  Country: JP (occurrence: JP)
  Receive Date: 20120926
  Receipt Date: 20130221
  Transmission Date: 20140127
  Serious: Yes (Other)
  Sender: FDA-Public Use
  Company Number: JP-GLAXOSMITHKLINE-B0832816A

PATIENT
  Age: 60 Year
  Sex: Male

DRUGS (1)
  1. REQUIP [Suspect]
     Indication: PARKINSON^S DISEASE
     Dosage: 2MG THREE TIMES PER DAY
     Route: 048

REACTIONS (3)
  - Altered state of consciousness [Unknown]
  - Sudden onset of sleep [Unknown]
  - Road traffic accident [Unknown]
